FAERS Safety Report 20502641 (Version 1)
Quarter: 2022Q1

REPORT INFORMATION
  Report Type: Spontaneous
  Country: US (occurrence: None)
  Receive Date: 20220221
  Receipt Date: 20220221
  Transmission Date: 20220423
  Serious: Yes (Other)
  Sender: FDA-Public Use
  Company Number: None

PATIENT
  Age: 66 Year
  Sex: Female

DRUGS (1)
  1. CAPECITABINE [Suspect]
     Active Substance: CAPECITABINE
     Indication: Gastric cancer
     Dosage: FREQUENCY : TWICE A DAY;?
     Route: 048
     Dates: start: 202201, end: 202201

REACTIONS (12)
  - Bone cancer [None]
  - Nausea [None]
  - Vomiting [None]
  - Dizziness [None]
  - Vertigo [None]
  - Pain in extremity [None]
  - Asthenia [None]
  - Dehydration [None]
  - Hypophagia [None]
  - Mental impairment [None]
  - Fall [None]
  - Therapy interrupted [None]

NARRATIVE: CASE EVENT DATE: 20220107
